FAERS Safety Report 16614258 (Version 1)
Quarter: 2019Q3

REPORT INFORMATION
  Report Type: Spontaneous
  Country: US (occurrence: US)
  Receive Date: 20190610
  Receipt Date: 20190610
  Transmission Date: 20191004
  Serious: No
  Sender: FDA-Public Use
  Company Number: None

PATIENT
  Sex: Female

DRUGS (1)
  1. ENTECAVIR 0.5MG [Suspect]
     Active Substance: ENTECAVIR
     Indication: URGE INCONTINENCE
     Route: 048
     Dates: start: 20181024

REACTIONS (2)
  - Depression [None]
  - Alopecia [None]
